FAERS Safety Report 14285999 (Version 11)
Quarter: 2023Q4

REPORT INFORMATION
  Report Type: Report from Study
  Country: US (occurrence: US)
  Receive Date: 20171214
  Receipt Date: 20231124
  Transmission Date: 20240109
  Serious: Yes (Other)
  Sender: FDA-Public Use
  Company Number: None

PATIENT
  Age: 64 Year
  Sex: Male
  Weight: 90 kg

DRUGS (34)
  1. LAMPRENE [Suspect]
     Active Substance: CLOFAZIMINE
     Indication: Mycobacterium avium complex infection
     Dosage: 100 MG, QD
     Route: 048
     Dates: start: 20171031
  2. AMIKACIN [Concomitant]
     Active Substance: AMIKACIN
     Indication: Mycobacterium avium complex infection
     Dosage: 600 MG
     Route: 042
     Dates: start: 20181130
  3. AMIKACIN [Concomitant]
     Active Substance: AMIKACIN
     Dosage: 1500 MG (THREE TIMES WEEKLY)
     Route: 042
     Dates: start: 20230217, end: 20230518
  4. AMIKACIN [Concomitant]
     Active Substance: AMIKACIN
     Dosage: 1500 MG (THREE TIMES WEEKLY)
     Route: 042
     Dates: start: 20230518
  5. ETHAMBUTOL [Concomitant]
     Active Substance: ETHAMBUTOL HYDROCHLORIDE
     Indication: Mycobacterium avium complex infection
     Dosage: 1600 MG, QD
     Route: 048
     Dates: start: 20161227, end: 20201204
  6. ETHAMBUTOL [Concomitant]
     Active Substance: ETHAMBUTOL HYDROCHLORIDE
     Dosage: 1600 MG, QD
     Route: 048
     Dates: start: 20201204
  7. ETHAMBUTOL [Concomitant]
     Active Substance: ETHAMBUTOL HYDROCHLORIDE
     Dosage: 1600 MG, QD
     Route: 048
     Dates: start: 20230718
  8. RIFABUTIN [Concomitant]
     Active Substance: RIFABUTIN
     Indication: Mycobacterium avium complex infection
     Dosage: 150 MG, BID
     Route: 048
     Dates: start: 20161227
  9. RIFABUTIN [Concomitant]
     Active Substance: RIFABUTIN
     Dosage: 150 MG, BID
     Route: 048
     Dates: start: 20201125
  10. ATORVASTATIN [Concomitant]
     Active Substance: ATORVASTATIN
     Indication: Hyperlipidaemia
     Dosage: 40 MG, QD
     Route: 048
     Dates: start: 20190301
  11. BECLOMETHASONE DIPROPIONATE [Concomitant]
     Active Substance: BECLOMETHASONE DIPROPIONATE
     Indication: Chronic obstructive pulmonary disease
     Dosage: 80 UG
     Route: 050
     Dates: start: 20140612
  12. COMBIVENT [Concomitant]
     Active Substance: ALBUTEROL SULFATE\IPRATROPIUM BROMIDE
     Indication: Chronic obstructive pulmonary disease
     Dosage: 20/100 UG
     Route: 050
     Dates: start: 20140612
  13. CEFTAROLINE [Concomitant]
     Active Substance: CEFTAROLINE
     Indication: Mycobacterium avium complex infection
     Dosage: 600 MG, Q12H
     Route: 042
     Dates: start: 20181228
  14. CEFTAROLINE [Concomitant]
     Active Substance: CEFTAROLINE
     Dosage: 600 MG, Q12H
     Route: 042
     Dates: start: 20200224
  15. CEFTAROLINE [Concomitant]
     Active Substance: CEFTAROLINE
     Dosage: 600 MG, Q12H
     Route: 042
  16. CEFTAROLINE [Concomitant]
     Active Substance: CEFTAROLINE
     Dosage: 600 MG, Q12H
     Route: 042
     Dates: start: 20201028, end: 20210219
  17. CEFTAROLINE [Concomitant]
     Active Substance: CEFTAROLINE
     Dosage: 600 MG, Q12H
     Route: 042
     Dates: start: 20210813, end: 20211008
  18. CEFTAROLINE [Concomitant]
     Active Substance: CEFTAROLINE
     Dosage: 600 MG, Q12H
     Route: 042
     Dates: start: 20220425, end: 20220625
  19. CEFTAROLINE [Concomitant]
     Active Substance: CEFTAROLINE
     Dosage: 600 MG, Q12H
     Route: 042
     Dates: start: 20221202, end: 20230217
  20. AZITHROMYCIN [Concomitant]
     Active Substance: AZITHROMYCIN
     Indication: Mycobacterium avium complex infection
     Dosage: 500 MG, QD
     Route: 048
     Dates: start: 20180316
  21. AZITHROMYCIN [Concomitant]
     Active Substance: AZITHROMYCIN
     Dosage: 500 MG, QD
     Route: 048
     Dates: start: 20200629, end: 20201125
  22. AZITHROMYCIN [Concomitant]
     Active Substance: AZITHROMYCIN
     Dosage: 250 MG, QD
     Route: 048
     Dates: start: 20210323, end: 20220101
  23. AZITHROMYCIN [Concomitant]
     Active Substance: AZITHROMYCIN
     Dosage: 250 MG, QD
     Route: 048
     Dates: start: 20230508
  24. TEDIZOLID [Concomitant]
     Active Substance: TEDIZOLID
     Indication: Mycobacterium avium complex infection
     Dosage: 200 MG, QD
     Route: 048
     Dates: start: 20201124, end: 20210105
  25. IMIPENEM [Concomitant]
     Active Substance: IMIPENEM
     Indication: Mycobacterium avium complex infection
     Dosage: 1000 MG, Q6H
     Route: 065
     Dates: start: 20181130
  26. IMIPENEM [Concomitant]
     Active Substance: IMIPENEM
     Dosage: 1 G, Q12H
     Route: 042
     Dates: start: 20200224
  27. IMIPENEM [Concomitant]
     Active Substance: IMIPENEM
     Dosage: 1 G, Q12H
     Route: 042
     Dates: start: 20201028, end: 20210219
  28. IMIPENEM [Concomitant]
     Active Substance: IMIPENEM
     Dosage: 1 G, Q12H
     Route: 042
     Dates: start: 20210813, end: 20221008
  29. IMIPENEM [Concomitant]
     Active Substance: IMIPENEM
     Dosage: 1 G, Q12H
     Route: 042
     Dates: start: 20220425, end: 20220625
  30. IMIPENEM [Concomitant]
     Active Substance: IMIPENEM
     Dosage: 1 G, Q12H
     Route: 042
     Dates: start: 20221202, end: 20230217
  31. BEDAQUILINE [Concomitant]
     Active Substance: BEDAQUILINE
     Indication: Mycobacterium avium complex infection
     Dosage: 400 MG, TIW
     Route: 048
     Dates: start: 20201212, end: 20210101
  32. PREDNISONE [Concomitant]
     Active Substance: PREDNISONE
     Indication: Chronic obstructive pulmonary disease
     Dosage: 30 MG, QD
     Route: 048
     Dates: start: 20200926
  33. ZANTAC [Concomitant]
     Active Substance: RANITIDINE HYDROCHLORIDE
     Indication: Chronic obstructive pulmonary disease
     Dosage: 150 MG, QD
     Route: 048
     Dates: start: 20140612
  34. OMADACYCLINE [Concomitant]
     Active Substance: OMADACYCLINE
     Indication: Mycobacterium avium complex infection
     Dosage: 300 MG, QD
     Route: 048
     Dates: start: 20230321, end: 20230508

REACTIONS (8)
  - Vitreous detachment [Recovered/Resolved]
  - Vision blurred [Recovering/Resolving]
  - Vitreous floaters [Recovering/Resolving]
  - Gastrooesophageal reflux disease [Recovered/Resolved]
  - Concomitant disease aggravated [Recovered/Resolved]
  - Melanocytic naevus [Recovering/Resolving]
  - Nausea [Recovered/Resolved]
  - Constipation [Recovered/Resolved]

NARRATIVE: CASE EVENT DATE: 20171124
